FAERS Safety Report 19889040 (Version 1)
Quarter: 2021Q3

REPORT INFORMATION
  Report Type: Spontaneous
  Country: US (occurrence: US)
  Receive Date: 20210927
  Receipt Date: 20210927
  Transmission Date: 20211014
  Serious: Yes (Death)
  Sender: FDA-Public Use
  Company Number: None

PATIENT
  Age: 70 Year
  Sex: Female

DRUGS (1)
  1. CAPECITABINE TAB 150MG [Suspect]
     Active Substance: CAPECITABINE
     Route: 048
     Dates: start: 202108

REACTIONS (6)
  - Adverse drug reaction [None]
  - Weight decreased [None]
  - Depressed level of consciousness [None]
  - Hypotension [None]
  - Pyrexia [None]
  - Feeling cold [None]

NARRATIVE: CASE EVENT DATE: 20210921
